FAERS Safety Report 10009995 (Version 1)
Quarter: 2014Q1

REPORT INFORMATION
  Report Type: Spontaneous
  Country: US (occurrence: US)
  Receive Date: 20140312
  Receipt Date: 20140312
  Transmission Date: 20141002
  Serious: No
  Sender: FDA-Public Use
  Company Number: US-INCYTE CORPORATION-2013IN000547

PATIENT
  Age: 93 Year
  Sex: Female

DRUGS (3)
  1. JAKAFI [Suspect]
     Dosage: 20 MG, BID
     Route: 048
     Dates: start: 20130307
  2. LISINOPRIL [Concomitant]
  3. LEVOTHYROXINE [Concomitant]

REACTIONS (9)
  - Palpitations [Unknown]
  - Hypoaesthesia [Unknown]
  - Abdominal distension [Unknown]
  - Chills [Unknown]
  - Fatigue [Unknown]
  - Asthenia [Unknown]
  - Abdominal pain [Unknown]
  - Decreased appetite [Unknown]
  - Dizziness [Unknown]
